FAERS Safety Report 18170052 (Version 7)
Quarter: 2022Q3

REPORT INFORMATION
  Report Type: Report from Study
  Country: US (occurrence: US)
  Receive Date: 20200819
  Receipt Date: 20220926
  Transmission Date: 20221026
  Serious: Yes (Hospitalization, Other)
  Sender: FDA-Public Use
  Company Number: US-SHIRE-US202026452

PATIENT
  Sex: Female
  Weight: 45 kg

DRUGS (22)
  1. HUMAN IMMUNOGLOBULIN G [Suspect]
     Active Substance: HUMAN IMMUNOGLOBULIN G
     Indication: Immunodeficiency common variable
     Dosage: 35 GRAM, Q3WEEKS
     Route: 042
     Dates: start: 20190903
  2. HUMAN IMMUNOGLOBULIN G [Suspect]
     Active Substance: HUMAN IMMUNOGLOBULIN G
     Dosage: 35 GRAM, Q3WEEKS
     Route: 042
     Dates: start: 20190905
  3. DIPHENHYDRAMINE [Concomitant]
     Active Substance: DIPHENHYDRAMINE
  4. EFFEXOR [Concomitant]
     Active Substance: VENLAFAXINE HYDROCHLORIDE
  5. SYMBICORT [Concomitant]
     Active Substance: BUDESONIDE\FORMOTEROL FUMARATE DIHYDRATE
  6. EPINEPHRINE [Concomitant]
     Active Substance: EPINEPHRINE
  7. SODIUM CHLORIDE [Concomitant]
     Active Substance: SODIUM CHLORIDE
  8. PREDNISONE [Concomitant]
     Active Substance: PREDNISONE
     Indication: Respiratory tract infection
     Dosage: 10 MILLIGRAM
     Route: 065
  9. SPIRIVA RESPIMAT [Concomitant]
     Active Substance: TIOTROPIUM BROMIDE
  10. ACETAMINOPHEN [Concomitant]
     Active Substance: ACETAMINOPHEN
  11. SYNTHROID [Concomitant]
     Active Substance: LEVOTHYROXINE SODIUM
  12. DONEPEZIL HYDROCHLORIDE [Concomitant]
     Active Substance: DONEPEZIL HYDROCHLORIDE
  13. CLONAZEPAM [Concomitant]
     Active Substance: CLONAZEPAM
  14. HYDROCHLOROTHIAZIDE\LOSARTAN [Concomitant]
     Active Substance: HYDROCHLOROTHIAZIDE\LOSARTAN
  15. VITAMINS [Concomitant]
     Active Substance: VITAMINS
  16. MODERNA COVID-19 VACCINE [Concomitant]
     Active Substance: ELASOMERAN
     Route: 065
  17. ANASTROZOLE [Concomitant]
     Active Substance: ANASTROZOLE
  18. LIDOCAINE [Concomitant]
     Active Substance: LIDOCAINE
  19. PRAZOSIN [Concomitant]
     Active Substance: PRAZOSIN
  20. COMBIVENT RESPIMAT [Concomitant]
     Active Substance: ALBUTEROL SULFATE\IPRATROPIUM BROMIDE
  21. WELLBUTRIN [Concomitant]
     Active Substance: BUPROPION HYDROCHLORIDE
  22. FLUCELVAX QUADRIVALENT [Concomitant]
     Route: 065

REACTIONS (7)
  - Respiratory tract infection [Unknown]
  - Urinary tract infection [Unknown]
  - Pneumonia [Unknown]
  - Nasopharyngitis [Unknown]
  - Dyspnoea [Unknown]
  - Malaise [Unknown]
  - Product dose omission issue [Unknown]
